FAERS Safety Report 7720886-2 (Version None)
Quarter: 2011Q3

REPORT INFORMATION
  Report Type: 
  Country: None (occurrence: None)
  Receive Date: 20110831
  Receipt Date: 20110817
  Transmission Date: 20111222
  Serious: Yes (Other)
  Sender: FDA-Public Use
  Company Number: US-UCBSA-039801

PATIENT
  Sex: Female
  Weight: 64.318 kg

DRUGS (21)
  1. DEPAKOTE [Concomitant]
     Dates: start: 20100109, end: 20100204
  2. BIOTIN [Concomitant]
     Indication: VITAMIN SUPPLEMENTATION
     Dates: start: 20110404
  3. ERYTHROMYCIN/BENZOYL [Concomitant]
     Dates: start: 20090310
  4. SERTRALINE HYDROCHLORIDE [Concomitant]
     Indication: DEPRESSION
     Dates: start: 20080101, end: 20090401
  5. DEPAKOTE [Concomitant]
     Dates: start: 20110301, end: 20110321
  6. DEPAKOTE [Concomitant]
     Dates: start: 20110322, end: 20110526
  7. SUMATRIPTAN SUCCINATE [Concomitant]
     Indication: MIGRAINE
     Dates: start: 20110125
  8. TYLENOL-500 [Concomitant]
     Indication: MIGRAINE
     Dosage: 1-2 WEEK
     Dates: start: 20021201
  9. LORATADINE [Concomitant]
     Indication: HYPERSENSITIVITY
     Dates: start: 20090430
  10. DEPAKOTE [Concomitant]
     Indication: EPILEPSY
     Dates: start: 20091209, end: 20100108
  11. DEPAKOTE [Concomitant]
     Dates: start: 20100205, end: 20100305
  12. DEPAKOTE [Concomitant]
     Dates: start: 20100306, end: 20100913
  13. TYLENOL-500 [Concomitant]
     Indication: NECK PAIN
     Dosage: 1-2 WEEK
     Dates: start: 20021201
  14. ALLERGY EYE DROPS [Concomitant]
     Indication: HYPERSENSITIVITY
     Dosage: 1 DROP
     Dates: start: 20090504
  15. LACOSAMIDE [Suspect]
     Indication: EPILEPSY
     Route: 048
     Dates: start: 20090820, end: 20110628
  16. SERTRALINE HYDROCHLORIDE [Concomitant]
     Dates: start: 20090401
  17. DEPAKOTE [Concomitant]
     Dates: start: 20100914, end: 20110228
  18. DEPAKOTE [Concomitant]
     Dates: start: 20110527
  19. OMEPRAZOLE [Concomitant]
     Indication: GASTROINTESTINAL DISORDER
     Dates: start: 20070101
  20. ERYTHROMYCIN/BENZOYL [Concomitant]
     Indication: ACNE
     Dates: start: 20090310
  21. SIMETHICONE [Concomitant]
     Indication: FLATULENCE
     Dates: start: 20090201

REACTIONS (1)
  - CONVULSION [None]
